FAERS Safety Report 4363540-X (Version None)
Quarter: 2004Q2

REPORT INFORMATION
  Report Type: 
  Country: None (occurrence: None)
  Receive Date: 20040518
  Receipt Date: 20040506
  Transmission Date: 20050107
  Serious: Yes (Other)
  Sender: FDA-Public Use
  Company Number: 2004213281LU

PATIENT
  Age: 57 Year
  Sex: Male

DRUGS (2)
  1. CAMPTOSAR [Suspect]
     Indication: COLORECTAL CANCER
     Dosage: CYCLIC, IV
     Route: 042
  2. ERBITUX (CETUXIMAB) [Suspect]
     Indication: COLORECTAL CANCER
     Dosage: CYCLIC

REACTIONS (2)
  - CONDITION AGGRAVATED [None]
  - GLAUCOMA [None]
